FAERS Safety Report 7124737-9 (Version None)
Quarter: 2010Q4

REPORT INFORMATION
  Report Type: 
  Country: None (occurrence: None)
  Receive Date: 20101129
  Receipt Date: 20070814
  Transmission Date: 20110411
  Serious: Yes (Other)
  Sender: FDA-Public Use
  Company Number: NL-PFIZER INC-2010153704

PATIENT
  Sex: Female

DRUGS (1)
  1. VIRACEPT [Suspect]
     Dosage: UNK
     Route: 065
     Dates: start: 20070101

REACTIONS (1)
  - ABORTION SPONTANEOUS [None]
